FAERS Safety Report 12399139 (Version 2)
Quarter: 2016Q2

REPORT INFORMATION
  Report Type: Report from Study
  Country: DE (occurrence: DE)
  Receive Date: 20160524
  Receipt Date: 20160601
  Transmission Date: 20160815
  Serious: Yes (Other)
  Sender: FDA-Public Use
  Company Number: DE-BRISTOL-MYERS SQUIBB COMPANY-BMS-2016-015564

PATIENT
  Age: 62 Year
  Sex: Male

DRUGS (8)
  1. DASATINIB [Suspect]
     Active Substance: DASATINIB
     Indication: CHRONIC MYELOID LEUKAEMIA
     Dosage: 100 MG, QD
     Route: 065
  2. DASATINIB [Suspect]
     Active Substance: DASATINIB
     Dosage: 140 MG, UNK
     Route: 065
     Dates: start: 20150219
  3. DOXYCYCLINE. [Concomitant]
     Active Substance: DOXYCYCLINE
     Indication: PRODUCT USED FOR UNKNOWN INDICATION
     Dosage: 100 MG, UNK
     Route: 065
  4. DASATINIB [Suspect]
     Active Substance: DASATINIB
     Dosage: 120 MG, QD
     Route: 065
  5. TORASEMID [Concomitant]
     Active Substance: TORSEMIDE
     Indication: PRODUCT USED FOR UNKNOWN INDICATION
     Route: 065
  6. DASATINIB [Suspect]
     Active Substance: DASATINIB
     Dosage: 140 MG, UNK
     Route: 065
     Dates: start: 20151220
  7. DASATINIB [Suspect]
     Active Substance: DASATINIB
     Dosage: 140 MG, UNK
     Route: 065
     Dates: start: 20160212
  8. CIPROFLOX                          /00697202/ [Concomitant]
     Active Substance: CIPROFLOXACIN HYDROCHLORIDE
     Indication: PRODUCT USED FOR UNKNOWN INDICATION
     Route: 065

REACTIONS (3)
  - Cardiac disorder [Recovered/Resolved]
  - Infection [Recovered/Resolved]
  - Infestation [Recovered/Resolved]

NARRATIVE: CASE EVENT DATE: 20150217
